FAERS Safety Report 21792342 (Version 1)
Quarter: 2022Q4

REPORT INFORMATION
  Report Type: Other
  Country: CN (occurrence: CN)
  Receive Date: 20221229
  Receipt Date: 20221229
  Transmission Date: 20230113
  Serious: Yes (Other)
  Sender: FDA-Public Use
  Company Number: CN-DEXPHARM-20222660

PATIENT
  Age: 70 Year
  Sex: Male

DRUGS (2)
  1. SALINE [Concomitant]
     Active Substance: SODIUM CHLORIDE
  2. ESOMEPRAZOLE [Suspect]
     Active Substance: ESOMEPRAZOLE
     Dosage: 40 MG ONCE ORALLY DAILY

REACTIONS (2)
  - Hallucination [Recovered/Resolved]
  - Anxiety [Recovered/Resolved]
